FAERS Safety Report 8164151-0 (Version None)
Quarter: 2012Q1

REPORT INFORMATION
  Report Type: 
  Country: None (occurrence: None)
  Receive Date: 20120103
  Receipt Date: 20111018
  Transmission Date: 20120608
  Serious: No
  Sender: FDA-Public Use
  Company Number: AE-2011-001889

PATIENT
  Age: 57 Year
  Sex: Female
  Weight: 74.8435 kg

DRUGS (3)
  1. PEGASYS [Concomitant]
  2. INCIVEK [Suspect]
     Dosage: 2250 MG (750 MG, 3 IN 1 D) , ORAL
     Route: 048
     Dates: start: 20110916
  3. RIBASPHERE [Concomitant]

REACTIONS (3)
  - RASH [None]
  - MOUTH ULCERATION [None]
  - ANORECTAL DISCOMFORT [None]
